FAERS Safety Report 7564749-4 (Version None)
Quarter: 2011Q2

REPORT INFORMATION
  Report Type: 
  Country: None (occurrence: None)
  Receive Date: 20110622
  Receipt Date: 20101216
  Transmission Date: 20111010
  Serious: Yes (Other)
  Sender: FDA-Public Use
  Company Number: US-MYLANLABS-2010S1019478

PATIENT
  Age: 55 Year
  Sex: Female
  Weight: 75 kg

DRUGS (4)
  1. CLOZAPINE [Suspect]
     Route: 048
     Dates: end: 20101001
  2. CLOZAPINE [Suspect]
     Route: 048
     Dates: start: 20101101, end: 20101101
  3. CLOZAPINE [Suspect]
     Route: 048
     Dates: end: 20101001
  4. CLOZAPINE [Suspect]
     Route: 048
     Dates: end: 20101001

REACTIONS (2)
  - LEUKOPENIA [None]
  - GRANULOCYTOPENIA [None]
